FAERS Safety Report 21560018 (Version 2)
Quarter: 2022Q4

REPORT INFORMATION
  Report Type: Report from Study
  Country: US (occurrence: US)
  Receive Date: 20221107
  Receipt Date: 20221109
  Transmission Date: 20230113
  Serious: No
  Sender: FDA-Public Use
  Company Number: US-ABBVIE-22K-163-4467667-00

PATIENT
  Sex: Male

DRUGS (4)
  1. HUMIRA [Suspect]
     Active Substance: ADALIMUMAB
     Indication: Crohn^s disease
     Dosage: CITRATE FREE
     Route: 058
  2. HUMIRA [Suspect]
     Active Substance: ADALIMUMAB
     Dosage: CITRATE FREE
     Route: 058
  3. PFIZER-BIONTECH COVID-19 VACCINE [Suspect]
     Active Substance: TOZINAMERAN
     Indication: COVID-19 immunisation
     Dosage: TIME INTERVAL: 1 TOTAL: 1ST DOSE?ONE IN ONCE
     Route: 030
     Dates: start: 202103, end: 202103
  4. PFIZER-BIONTECH COVID-19 VACCINE [Suspect]
     Active Substance: TOZINAMERAN
     Indication: COVID-19 immunisation
     Dosage: TIME INTERVAL: 1 TOTAL: 2ND DOSE?ONE IN ONCE
     Route: 030
     Dates: start: 20210412, end: 20210412

REACTIONS (10)
  - Rash [Not Recovered/Not Resolved]
  - Eczema [Unknown]
  - Peripheral swelling [Unknown]
  - Psoriasis [Unknown]
  - Drug ineffective [Unknown]
  - Inflammatory marker decreased [Recovering/Resolving]
  - Diarrhoea [Not Recovered/Not Resolved]
  - Urticaria [Unknown]
  - Crohn^s disease [Not Recovered/Not Resolved]
  - Drug level decreased [Recovering/Resolving]
